FAERS Safety Report 6755777-7 (Version None)
Quarter: 2010Q2

REPORT INFORMATION
  Report Type: 
  Country: None (occurrence: None)
  Receive Date: 20100604
  Receipt Date: 20100528
  Transmission Date: 20101027
  Serious: Yes (Other)
  Sender: FDA-Public Use
  Company Number: US-ELI_LILLY_AND_COMPANY-US201006000383

PATIENT
  Age: 64 Year
  Sex: Male

DRUGS (2)
  1. HUMALOG [Suspect]
     Indication: DIABETES MELLITUS
     Dosage: 250 U, DAILY (1/D)
  2. LEVEMIR [Concomitant]

REACTIONS (2)
  - PROSTATE CANCER [None]
  - SHOCK HYPOGLYCAEMIC [None]
